FAERS Safety Report 5941018-7 (Version None)
Quarter: 2008Q4

REPORT INFORMATION
  Report Type: 
  Country: None (occurrence: None)
  Receive Date: 20081104
  Receipt Date: 20081029
  Transmission Date: 20090506
  Serious: Yes (Other)
  Sender: FDA-Public Use
  Company Number: PHHY2008AR26462

PATIENT
  Sex: Female

DRUGS (1)
  1. DIOVAN [Suspect]
     Indication: ARRHYTHMIA
     Dosage: 80 MG, QD
     Dates: start: 20061001

REACTIONS (4)
  - CARDIOVASCULAR DISORDER [None]
  - INFECTED SKIN ULCER [None]
  - SKIN ULCER [None]
  - URINARY RETENTION [None]
